FAERS Safety Report 6357741-9 (Version None)
Quarter: 2009Q3

REPORT INFORMATION
  Report Type: 
  Country: None (occurrence: None)
  Receive Date: 20090911
  Receipt Date: 20090902
  Transmission Date: 20100115
  Serious: No
  Sender: FDA-Public Use
  Company Number: 232605K09USA

PATIENT
  Age: 40 Year
  Sex: Female

DRUGS (5)
  1. REBIF [Suspect]
     Indication: MULTIPLE SCLEROSIS
     Dosage: 44 MCG, 3 IN 1 WEEKS, SUBCUTANEOUS
     Route: 058
     Dates: start: 20080416
  2. BACLOFEN [Concomitant]
  3. GABAPENTIN [Concomitant]
  4. CYMBALTA [Concomitant]
  5. TRAZODONE HCL [Concomitant]

REACTIONS (2)
  - CONDITION AGGRAVATED [None]
  - GASTRIC ULCER [None]
